FAERS Safety Report 4571913-5 (Version None)
Quarter: 2005Q1

REPORT INFORMATION
  Report Type: 
  Country: None (occurrence: None)
  Receive Date: 20050202
  Receipt Date: 20050124
  Transmission Date: 20050727
  Serious: Yes (Death, Hospitalization)
  Sender: FDA-Public Use
  Company Number: SUSI-2005-00015

PATIENT
  Age: 14 Year
  Sex: Male

DRUGS (1)
  1. ADERALL XR (DEXTROAMPHETAMINE SULFATE, DEXTROAMPHETAMINE SACCHARATE, A [Suspect]
     Indication: ATTENTION DEFICIT/HYPERACTIVITY DISORDER
     Dosage: 15 MG, 1X/DAY: QD
     Dates: start: 20020101, end: 20050106

REACTIONS (10)
  - ANOXIA [None]
  - CARDIAC DISORDER [None]
  - CEREBRAL ISCHAEMIA [None]
  - CIRCULATORY COLLAPSE [None]
  - DYSKINESIA [None]
  - ENCEPHALOPATHY [None]
  - ISCHAEMIA [None]
  - NERVOUS SYSTEM DISORDER [None]
  - VENTRICULAR EXTRASYSTOLES [None]
  - VENTRICULAR FIBRILLATION [None]
